FAERS Safety Report 8377196-2 (Version None)
Quarter: 2012Q2

REPORT INFORMATION
  Report Type: 
  Country: None (occurrence: None)
  Receive Date: 20120522
  Receipt Date: 20120514
  Transmission Date: 20120825
  Serious: Yes (Other)
  Sender: FDA-Public Use
  Company Number: US-US-EMD SERONO, INC.-7126421

PATIENT
  Sex: Female
  Weight: 98 kg

DRUGS (2)
  1. REBIF [Suspect]
     Route: 058
     Dates: start: 20120401
  2. REBIF [Suspect]
     Indication: PRODUCT USED FOR UNKNOWN INDICATION
     Route: 058
     Dates: start: 20110813, end: 20120401

REACTIONS (2)
  - PAIN IN EXTREMITY [None]
  - ARTHROPATHY [None]
